FAERS Safety Report 4366998-5 (Version None)
Quarter: 2004Q2

REPORT INFORMATION
  Report Type: 
  Country: None (occurrence: None)
  Receive Date: 20040524
  Receipt Date: 20040510
  Transmission Date: 20050107
  Serious: Yes (Hospitalization, Other)
  Sender: FDA-Public Use
  Company Number: 2004031399

PATIENT
  Age: 37 Year
  Sex: Male

DRUGS (3)
  1. NARDIL [Suspect]
     Indication: DEPRESSION
     Dosage: (15 MG,1 IN 1 D), ORAL
     Route: 048
     Dates: start: 19880101
  2. ALL OTHER THERAPEUTIC PRODUCTS (ALL OTHER THERAPEUTIC PRODUCTS) [Concomitant]
  3. ALPRAZOLAM [Concomitant]

REACTIONS (13)
  - ANXIETY [None]
  - CONDITION AGGRAVATED [None]
  - DEPRESSION [None]
  - DRUG INEFFECTIVE [None]
  - DRUG WITHDRAWAL SYNDROME [None]
  - EXOSTOSIS [None]
  - HYPERTENSION [None]
  - INSOMNIA [None]
  - NIGHTMARE [None]
  - PALPITATIONS [None]
  - PANIC ATTACK [None]
  - POST PROCEDURAL PAIN [None]
  - WEIGHT INCREASED [None]
